FAERS Safety Report 24449469 (Version 1)
Quarter: 2024Q4

REPORT INFORMATION
  Report Type: Spontaneous
  Country: US (occurrence: US)
  Receive Date: 20241017
  Receipt Date: 20241017
  Transmission Date: 20250114
  Serious: Yes (Hospitalization, Disabling, Other)
  Sender: VELOXIS PHARMACEUTICALS
  Company Number: US-MLMSERVICE-20241004-PI210164-00271-1

PATIENT
  Age: 6 Decade
  Sex: Female

DRUGS (6)
  1. TACROLIMUS [Suspect]
     Active Substance: TACROLIMUS
     Indication: Immunosuppressant drug therapy
     Dosage: GOAL: 10-12 NG/ML
  2. MYCOPHENOLIC ACID [Suspect]
     Active Substance: MYCOPHENOLIC ACID
     Indication: Immunosuppressant drug therapy
     Dosage: 1000 MILLIGRAM, BID
  3. PREDNISONE [Suspect]
     Active Substance: PREDNISONE
     Indication: Immunosuppressant drug therapy
     Dosage: STANDARD TAPERING COURSE
  4. SULFAMETHOXAZOLE\TRIMETHOPRIM [Suspect]
     Active Substance: SULFAMETHOXAZOLE\TRIMETHOPRIM
     Indication: Antibiotic prophylaxis
     Dosage: 800/160 MG 3 TIMES WEEKLY
  5. CLOTRIMAZOLE [Concomitant]
     Active Substance: CLOTRIMAZOLE
     Indication: Antifungal prophylaxis
     Dosage: 10 MILLIGRAM,8 HOUR
  6. VALGANCICLOVIR [Concomitant]
     Active Substance: VALGANCICLOVIR
     Indication: Antiviral prophylaxis
     Dosage: 900 MILLIGRAM, QD

REACTIONS (9)
  - Mitral valve incompetence [Recovered/Resolved]
  - Tricuspid valve incompetence [Recovered/Resolved]
  - Acute myocardial infarction [Recovered/Resolved]
  - Pleural effusion [Recovered/Resolved]
  - Blindness unilateral [Recovered/Resolved]
  - Aspergillus infection [Recovered/Resolved]
  - Vitritis infective [Recovered/Resolved]
  - Cardiac infection [Recovered/Resolved]
  - Endophthalmitis [Recovered/Resolved]
